FAERS Safety Report 9085683 (Version 2)
Quarter: 2013Q2

REPORT INFORMATION
  Report Type: Report from Study
  Country: BR (occurrence: BR)
  Receive Date: 20130130
  Receipt Date: 20130401
  Transmission Date: 20140414
  Serious: Yes (Other)
  Sender: FDA-Public Use
  Company Number: PHHY2013BR007461

PATIENT
  Age: 38 Year
  Sex: Female

DRUGS (6)
  1. TEGRETOL CR [Suspect]
     Indication: EPILEPSY
     Dosage: 1 DF, BID (400MG) (1 IN THE MORNING AND 1 AT NIGHT)
     Route: 048
  2. TEGRETOL CR [Suspect]
     Dosage: 1 DF, (200 MG), (HALF IN THE MORNING AND HALF AT NIGHT)
     Route: 048
  3. TEGRETOL CR [Suspect]
     Dosage: 1.5 DF, TID (400 MG)
     Route: 048
  4. TEGRETOL CR [Suspect]
     Dosage: 0.5 DF, TID (200 MG)
     Route: 048
  5. FRISIUM [Suspect]
     Indication: EPILEPSY
     Dosage: 2 DF, PER DAY (10 MG)
     Route: 048
  6. FRISIUM [Suspect]
     Dosage: 2.5 DF, DAILY (1 TABLET IN MORNING, HALF TABLET IN AFTERNOON AND 1 TABLET AT NIGHT) (20 MG)
     Route: 048

REACTIONS (5)
  - Osteoarthritis [Unknown]
  - Suicide attempt [Unknown]
  - Depression [Recovering/Resolving]
  - Stress [Unknown]
  - Petit mal epilepsy [Recovered/Resolved]
